FAERS Safety Report 19082713 (Version 1)
Quarter: 2021Q2

REPORT INFORMATION
  Report Type: Spontaneous
  Country: US (occurrence: US)
  Receive Date: 20210401
  Receipt Date: 20210401
  Transmission Date: 20210717
  Serious: Yes (Hospitalization)
  Sender: FDA-Public Use
  Company Number: None

PATIENT
  Sex: Female
  Weight: 109 kg

DRUGS (3)
  1. CYCLOPHOSPHAMIDE. [Suspect]
     Active Substance: CYCLOPHOSPHAMIDE
  2. DOXORUBICIN HYDROCHLORIDE. [Concomitant]
     Active Substance: DOXORUBICIN HYDROCHLORIDE
  3. PACKUTAXEK (TAXOL) [Concomitant]

REACTIONS (11)
  - General physical health deterioration [None]
  - Neuropathy peripheral [None]
  - Procalcitonin increased [None]
  - Dyspnoea [None]
  - Pericardial effusion [None]
  - Fatigue [None]
  - Immunodeficiency [None]
  - Ejection fraction decreased [None]
  - Neutrophil count decreased [None]
  - Chest discomfort [None]
  - Pericarditis [None]

NARRATIVE: CASE EVENT DATE: 20210318
